FAERS Safety Report 7029562-5 (Version None)
Quarter: 2010Q4

REPORT INFORMATION
  Report Type: 
  Country: None (occurrence: None)
  Receive Date: 20101005
  Receipt Date: 20100929
  Transmission Date: 20110411
  Serious: Yes (Other)
  Sender: FDA-Public Use
  Company Number: HU-AMGEN-KDL431368

PATIENT
  Sex: Female
  Weight: 52 kg

DRUGS (2)
  1. NPLATE [Suspect]
     Indication: IDIOPATHIC THROMBOCYTOPENIC PURPURA
     Route: 058
     Dates: start: 20100610
  2. PANTOPRAZOLE [Concomitant]
     Dates: start: 20100225

REACTIONS (5)
  - BONE PAIN [None]
  - HEADACHE [None]
  - MUSCULAR WEAKNESS [None]
  - PARAESTHESIA [None]
  - THERAPEUTIC RESPONSE DECREASED [None]
